FAERS Safety Report 8737384 (Version 2)
Quarter: 2013Q4

REPORT INFORMATION
  Report Type: Report from Study
  Country: US (occurrence: US)
  Receive Date: 20120822
  Receipt Date: 20131105
  Transmission Date: 20140711
  Serious: Yes (Other)
  Sender: FDA-Public Use
  Company Number: US-009507513-2012SP008773

PATIENT
  Sex: Male

DRUGS (2)
  1. PEGINTRON [Suspect]
     Indication: HEPATITIS C
     Dosage: UNK
     Dates: start: 20120208
  2. REBETOL [Suspect]
     Indication: HEPATITIS C
     Dosage: UNK
     Dates: start: 20120208

REACTIONS (6)
  - Loss of consciousness [Unknown]
  - Fall [Unknown]
  - Back pain [Unknown]
  - Fatigue [Unknown]
  - Dehydration [Unknown]
  - Drug ineffective [Unknown]
